FAERS Safety Report 5491263-2 (Version None)
Quarter: 2007Q4

REPORT INFORMATION
  Report Type: 
  Country: None (occurrence: None)
  Receive Date: 20071017
  Receipt Date: 20071009
  Transmission Date: 20080405
  Serious: Yes (Death)
  Sender: FDA-Public Use
  Company Number: 430080K07USA

PATIENT
  Age: 68 Year
  Sex: Female

DRUGS (1)
  1. NOVANTRONE [Suspect]
     Indication: MULTIPLE SCLEROSIS
     Dosage: 1 IN 3 MONTHS

REACTIONS (4)
  - APHASIA [None]
  - LETHARGY [None]
  - LOWER RESPIRATORY TRACT INFECTION BACTERIAL [None]
  - RESPIRATORY ARREST [None]
